FAERS Safety Report 8780185 (Version 1)
Quarter: 2012Q4

REPORT INFORMATION
  Report Type: Spontaneous
  Country: JP (occurrence: None)
  Receive Date: 20120829
  Receipt Date: 20120829
  Transmission Date: 20130627
  Serious: Yes (Life-Threatening)
  Sender: FDA-Public Use
  Company Number: FK201202404

PATIENT
  Age: 18 Month
  Sex: Male

DRUGS (2)
  1. NEOSTIGMINE [Suspect]
     Indication: NEUROMUSCULAR BLOCKADE REVERSAL
     Dosage: 0.04 mg/ kg, Intravenous  (not otherwise specified)
     Route: 042
  2. ATROPINE [Suspect]
     Indication: NEUROMUSCULAR BLOCKADE REVERSAL
     Dosage: 0.015 mg/kg Intravenous (not specified)
     Route: 042

REACTIONS (3)
  - Cardiac arrest [None]
  - Heart rate increased [None]
  - Bradycardia [None]
